FAERS Safety Report 9934522 (Version 2)
Quarter: 2014Q1

REPORT INFORMATION
  Report Type: Report from Study
  Country: AU (occurrence: AU)
  Receive Date: 20140228
  Receipt Date: 20140318
  Transmission Date: 20141002
  Serious: Yes (Death)
  Sender: FDA-Public Use
  Company Number: AU-BRISTOL-MYERS SQUIBB COMPANY-20329793

PATIENT
  Age: 81 Year
  Sex: Male

DRUGS (1)
  1. YERVOY [Suspect]
     Indication: MALIGNANT MELANOMA
     Dosage: 10SEP13, 01OCT13, 22OCT13?240 MG
     Route: 042
     Dates: start: 20130805, end: 20131021

REACTIONS (1)
  - Malignant neoplasm progression [Fatal]
